FAERS Safety Report 6946228-8 (Version None)
Quarter: 2010Q3

REPORT INFORMATION
  Report Type: 
  Country: None (occurrence: None)
  Receive Date: 20100824
  Receipt Date: 20100811
  Transmission Date: 20110219
  Serious: Yes (Hospitalization)
  Sender: FDA-Public Use
  Company Number: 014681

PATIENT
  Sex: Female

DRUGS (14)
  1. CERTOLIZUMAB PEGOL (CERTOLIZUMAB PEGOL) [Suspect]
     Indication: RHEUMATOID ARTHRITIS
     Dosage: (C870-41 SUBCUTANEOUS) ; (SUBCUTANEOUS) ; (SUBCUTANEOUS)
     Route: 058
     Dates: start: 20090708, end: 20100107
  2. CERTOLIZUMAB PEGOL (CERTOLIZUMAB PEGOL) [Suspect]
     Indication: RHEUMATOID ARTHRITIS
     Dosage: (C870-41 SUBCUTANEOUS) ; (SUBCUTANEOUS) ; (SUBCUTANEOUS)
     Route: 058
     Dates: start: 20100121, end: 20100609
  3. CERTOLIZUMAB PEGOL (CERTOLIZUMAB PEGOL) [Suspect]
     Indication: RHEUMATOID ARTHRITIS
     Dosage: (C870-41 SUBCUTANEOUS) ; (SUBCUTANEOUS) ; (SUBCUTANEOUS)
     Route: 058
     Dates: start: 20100804
  4. METHOTREXATE [Concomitant]
  5. FOLIC ACID [Concomitant]
  6. PREDNISOLONE [Concomitant]
  7. DICLOFENAC SODIUM [Concomitant]
  8. CELECOXIB [Concomitant]
  9. DICLOFENAC SODIUM [Concomitant]
  10. TEPRENONE [Concomitant]
  11. LANSOPRAZOLE [Concomitant]
  12. FERROUS FUMARATE [Concomitant]
  13. ALUMINIUM HYDROXIDE-MAGNESIUM CARBONATE GEL [Concomitant]
  14. DIFLUCORTOLONE VALERATE [Concomitant]

REACTIONS (6)
  - BACK PAIN [None]
  - HEADACHE [None]
  - KIDNEY ENLARGEMENT [None]
  - MALAISE [None]
  - PYELONEPHRITIS [None]
  - RENAL ABSCESS [None]
